FAERS Safety Report 5800300-4 (Version None)
Quarter: 2008Q3

REPORT INFORMATION
  Report Type: 
  Country: None (occurrence: None)
  Receive Date: 20080701
  Receipt Date: 20080617
  Transmission Date: 20090109
  Serious: Yes (Death)
  Sender: FDA-Public Use
  Company Number: 2008AL007287

PATIENT
  Age: 42 Year
  Sex: Male

DRUGS (4)
  1. DIGOXIN [Suspect]
     Indication: DUCHENNE MUSCULAR DYSTROPHY
     Dosage: 0.25 MG DAILY PO
     Route: 048
  2. SPIRONOLACTONE [Concomitant]
  3. COREG [Concomitant]
  4. LASIX [Concomitant]

REACTIONS (1)
  - CARDIAC FAILURE [None]
